FAERS Safety Report 5934304-8 (Version None)
Quarter: 2008Q4

REPORT INFORMATION
  Report Type: 
  Country: None (occurrence: None)
  Receive Date: 20081029
  Receipt Date: 20081020
  Transmission Date: 20090506
  Serious: Yes (Hospitalization)
  Sender: FDA-Public Use
  Company Number: PHHY2008CA25069

PATIENT
  Sex: Male

DRUGS (11)
  1. DIOVAN [Suspect]
     Indication: HYPERTENSION
     Dosage: 160 MG, QD
     Dates: start: 20071017, end: 20071114
  2. LASIX [Concomitant]
     Dosage: 20 MG DAILY
  3. NEXIUM [Concomitant]
     Dosage: 40 MG DAILY
  4. HYDROCHLOROTHIAZIDE [Concomitant]
     Dosage: 25 MG DAILY
  5. INSULATARD NPH HUMAN [Concomitant]
  6. TERBINAFINE HCL [Concomitant]
  7. CRESTOR [Concomitant]
  8. FERROUS SULFATE [Concomitant]
     Dosage: 1 G, BID
  9. TIAZAC [Concomitant]
     Dosage: 240 MG DAILY
  10. KAYEXALATE [Concomitant]
     Dosage: 15 G, QD
  11. INSULIN RAPID ^HOECHST MARION ROUSSEL^ [Concomitant]

REACTIONS (1)
  - RENAL TRANSPLANT [None]
